FAERS Safety Report 23803617 (Version 1)
Quarter: 2024Q2

REPORT INFORMATION
  Report Type: Spontaneous
  Country: US (occurrence: US)
  Receive Date: 20240501
  Receipt Date: 20240501
  Transmission Date: 20240716
  Serious: No
  Sender: FDA-Public Use
  Company Number: US-PFIZER INC-202400097728

PATIENT
  Age: 66 Year
  Sex: Female

DRUGS (1)
  1. IBRANCE [Suspect]
     Active Substance: PALBOCICLIB
     Dosage: 125 MG TABLETS - 1 TABLET BY MOUTH DAILY ON DAYS 1 THROUGH 21 OF EACH CYCLE FOLLOWED BY 7 DAYS OFF
     Dates: start: 20221206

REACTIONS (1)
  - Arthritis [Unknown]
